FAERS Safety Report 15948081 (Version 1)
Quarter: 2019Q1

REPORT INFORMATION
  Report Type: Report from Study
  Country: ZA (occurrence: ZA)
  Receive Date: 20190212
  Receipt Date: 20190212
  Transmission Date: 20190417
  Serious: Yes (Disabling)
  Sender: FDA-Public Use
  Company Number: ZA-SA-2018SA288460

PATIENT
  Age: 53 Year
  Sex: Male

DRUGS (1)
  1. OPTISULIN (INSULIN GLARGINE) [Suspect]
     Active Substance: INSULIN GLARGINE
     Indication: TYPE 2 DIABETES MELLITUS
     Dosage: 24 UNITS BB AND 24 UNITS BS, BID
     Route: 065
     Dates: start: 20181008

REACTIONS (3)
  - Inappropriate schedule of product administration [Unknown]
  - Headache [Not Recovered/Not Resolved]
  - Injection site mass [Recovered/Resolved]
